FAERS Safety Report 23302923 (Version 1)
Quarter: 2023Q4

REPORT INFORMATION
  Report Type: Spontaneous
  Country: US (occurrence: US)
  Receive Date: 20231215
  Receipt Date: 20231215
  Transmission Date: 20240109
  Serious: No
  Sender: FDA-Public Use
  Company Number: US-PRIMUS-2023-US-007761

PATIENT
  Age: 77 Year
  Sex: Female

DRUGS (2)
  1. IMPOYZ [Suspect]
     Active Substance: CLOBETASOL PROPIONATE
     Indication: Product use in unapproved indication
     Dosage: APPLY TOPICALLY TWICE A DAY
     Route: 061
  2. SERNIVO [Suspect]
     Active Substance: BETAMETHASONE DIPROPIONATE
     Indication: Exfoliative rash
     Dosage: APPLY TO SCALP AREAS OF SCALING RASH ONCE A DAY FOR 30 DAYS
     Route: 061

REACTIONS (2)
  - Drug ineffective [Unknown]
  - Incorrect product administration duration [Unknown]
